FAERS Safety Report 19441727 (Version 1)
Quarter: 2021Q2

REPORT INFORMATION
  Report Type: Spontaneous
  Country: IE (occurrence: IE)
  Receive Date: 20210621
  Receipt Date: 20210621
  Transmission Date: 20210717
  Serious: Yes (Other)
  Sender: FDA-Public Use
  Company Number: IE-GILEAD-2021-0535802

PATIENT
  Age: 38 Year
  Sex: Male

DRUGS (12)
  1. AMBISOME [Concomitant]
     Active Substance: AMPHOTERICIN B
     Indication: MENINGITIS CRYPTOCOCCAL
     Dosage: 4 MG/KG HOURLY, D0 TO D21
  2. FLUCYTOSINE. [Concomitant]
     Active Substance: FLUCYTOSINE
     Indication: MENINGITIS CRYPTOCOCCAL
     Dosage: 25 MG/KG 6 HOURLY, DAY 0
     Dates: start: 2020, end: 2020
  3. FLUCONAZOLE. [Concomitant]
     Active Substance: FLUCONAZOLE
     Dosage: 800 MG, QD REDUCED TO THIS DOSE ON DAY 45
     Dates: start: 2020, end: 2020
  4. DOLUTEGRAVIR;RILPIVIRINE [Concomitant]
     Active Substance: DOLUTEGRAVIR SODIUM\RILPIVIRINE HYDROCHLORIDE
     Dosage: RESTART DAY 119
  5. ISAVUCONAZOLE [Concomitant]
     Active Substance: ISAVUCONAZOLE
     Dosage: RESTART DAY 119
  6. FLUCONAZOLE. [Concomitant]
     Active Substance: FLUCONAZOLE
     Indication: MENINGITIS CRYPTOCOCCAL
     Dosage: 1200 MG, QD,
     Dates: start: 2020, end: 2020
  7. EMTRIVA [Suspect]
     Active Substance: EMTRICITABINE
     Indication: HIV INFECTION
     Dosage: DAY 50 TO DAY 112
     Route: 065
     Dates: start: 2020, end: 202101
  8. EMTRIVA [Suspect]
     Active Substance: EMTRICITABINE
     Dosage: RESTART D119
     Route: 065
     Dates: start: 2021
  9. AMBISOME [Concomitant]
     Active Substance: AMPHOTERICIN B
     Dosage: 4 MG/KG DAY START DAY 67 TO D79
  10. ISAVUCONAZOLE [Concomitant]
     Active Substance: ISAVUCONAZOLE
     Indication: MENINGITIS CRYPTOCOCCAL
     Dosage: START DAY 79
  11. BIKTARVY [Concomitant]
     Active Substance: BICTEGRAVIR SODIUM\EMTRICITABINE\TENOFOVIR ALAFENAMIDE FUMARATE
     Indication: HIV INFECTION
     Dosage: DAYS 26 TO 50
     Dates: start: 2020, end: 2020
  12. DOLUTEGRAVIR;RILPIVIRINE [Concomitant]
     Active Substance: DOLUTEGRAVIR SODIUM\RILPIVIRINE HYDROCHLORIDE
     Indication: HIV INFECTION
     Dosage: START AROUND DAY 50 TO 112

REACTIONS (4)
  - Drug ineffective [Unknown]
  - Immune reconstitution inflammatory syndrome [Recovered/Resolved]
  - Genotype drug resistance test positive [Unknown]
  - Intentional dose omission [Recovered/Resolved]

NARRATIVE: CASE EVENT DATE: 2020
